FAERS Safety Report 19995097 (Version 1)
Quarter: 2021Q4

REPORT INFORMATION
  Report Type: Spontaneous
  Country: US (occurrence: US)
  Receive Date: 20211025
  Receipt Date: 20211025
  Transmission Date: 20220303
  Serious: Yes (Hospitalization)
  Sender: FDA-Public Use
  Company Number: None

PATIENT
  Age: 47 Year
  Sex: Female
  Weight: 81.8 kg

DRUGS (2)
  1. DEVICE [Suspect]
     Active Substance: DEVICE
     Indication: Pulmonary hypertension
     Route: 041
     Dates: start: 20211020, end: 20211021
  2. REMODULIN [Suspect]
     Active Substance: TREPROSTINIL

REACTIONS (2)
  - Drug delivery system malfunction [None]
  - Device infusion issue [None]

NARRATIVE: CASE EVENT DATE: 20211021
